FAERS Safety Report 25445463 (Version 2)
Quarter: 2025Q2

REPORT INFORMATION
  Report Type: Spontaneous
  Country: US (occurrence: US)
  Receive Date: 20250617
  Receipt Date: 20250630
  Transmission Date: 20250716
  Serious: Yes (Other)
  Sender: TEVA
  Company Number: US-TEVA-VS-3340219

PATIENT
  Age: 14 Year
  Sex: Male

DRUGS (1)
  1. TESTOSTERONE [Suspect]
     Active Substance: TESTOSTERONE
     Indication: Congenital hypogonadotropic hypogonadism
     Route: 065

REACTIONS (1)
  - Obstructive sleep apnoea syndrome [Recovering/Resolving]

NARRATIVE: CASE EVENT DATE: 20190101
